FAERS Safety Report 5346230-6 (Version None)
Quarter: 2007Q2

REPORT INFORMATION
  Report Type: 
  Country: None (occurrence: None)
  Receive Date: 20070426
  Receipt Date: 20060316
  Transmission Date: 20071010
  Serious: Yes (Hospitalization)
  Sender: FDA-Public Use
  Company Number: US-JNJFOC-20060304852

PATIENT

DRUGS (1)
  1. ULTRAM [Suspect]
     Indication: SUBSTANCE ABUSE
     Dates: start: 19940101

REACTIONS (2)
  - DRUG ABUSER [None]
  - DRUG DEPENDENCE [None]
